FAERS Safety Report 19132633 (Version 1)
Quarter: 2021Q2

REPORT INFORMATION
  Report Type: Spontaneous
  Country: US (occurrence: US)
  Receive Date: 20210414
  Receipt Date: 20210414
  Transmission Date: 20210717
  Serious: No
  Sender: FDA-Public Use
  Company Number: US-DRREDDYS-USA/USA/21/0133767

PATIENT
  Age: 18 Year
  Sex: Male

DRUGS (2)
  1. ZENATANE [Suspect]
     Active Substance: ISOTRETINOIN
     Indication: PRODUCT USED FOR UNKNOWN INDICATION
     Dosage: RMA ISSUE DATE: 5/5/2020 1:20:07 PM,9/2/2020 4:04:52 PM
     Route: 048
  2. ZENATANE [Suspect]
     Active Substance: ISOTRETINOIN
     Dosage: RMA ISSUE DATE:11/30/2020 10:43:29 AM,12/26/2020 4:00:29 AM,1/25/2021 2:37:36 PM AND3/5/2021 11:56:4
     Route: 048

REACTIONS (1)
  - Adverse drug reaction [Unknown]
